FAERS Safety Report 11804916 (Version 1)
Quarter: 2015Q4

REPORT INFORMATION
  Report Type: Spontaneous
  Country: US (occurrence: US)
  Receive Date: 20151205
  Receipt Date: 20151205
  Transmission Date: 20160305
  Serious: No
  Sender: FDA-Public Use
  Company Number: US-BAUSCH-BL-2014-008843

PATIENT
  Age: 18 Year
  Sex: Male

DRUGS (1)
  1. XENAZINE [Suspect]
     Active Substance: TETRABENAZINE
     Indication: TREMOR
     Route: 048
     Dates: start: 20141021

REACTIONS (3)
  - Neurological symptom [Not Recovered/Not Resolved]
  - Off label use [Not Recovered/Not Resolved]
  - Muscle tone disorder [Not Recovered/Not Resolved]

NARRATIVE: CASE EVENT DATE: 20141021
